FAERS Safety Report 10069907 (Version 1)
Quarter: 2014Q2

REPORT INFORMATION
  Report Type: Spontaneous
  Country: US (occurrence: US)
  Receive Date: 20140410
  Receipt Date: 20140410
  Transmission Date: 20141212
  Serious: No
  Sender: FDA-Public Use
  Company Number: US-PFIZER INC-2014099610

PATIENT
  Age: 73 Year
  Sex: Male

DRUGS (3)
  1. MEDROL [Suspect]
     Dosage: UNK
  2. SEROQUEL [Suspect]
     Dosage: UNK
  3. ZYPREXA [Suspect]
     Dosage: UNK

REACTIONS (1)
  - Drug hypersensitivity [Unknown]
